FAERS Safety Report 9407203 (Version 2)
Quarter: 2013Q3

REPORT INFORMATION
  Report Type: Spontaneous
  Country: DE (occurrence: DE)
  Receive Date: 20130718
  Receipt Date: 20130801
  Transmission Date: 20140515
  Serious: Yes (Hospitalization)
  Sender: FDA-Public Use
  Company Number: DE-JNJFOC-20130708254

PATIENT
  Sex: Female

DRUGS (6)
  1. PREDNISOLONE [Suspect]
     Indication: INFLAMMATORY BOWEL DISEASE
     Route: 065
     Dates: start: 20130715
  2. MESALAZINE [Concomitant]
     Route: 065
     Dates: start: 20130520
  3. NOVALGIN [Concomitant]
     Route: 065
  4. PIRITRAMIDE [Concomitant]
     Route: 065
  5. REMICADE [Suspect]
     Indication: CROHN^S DISEASE
     Dosage: DOSE: 5 MG/KG BODY WEIGHT
     Route: 042
     Dates: start: 20130604
  6. PREDNISOLONE [Suspect]
     Indication: INFLAMMATORY BOWEL DISEASE
     Route: 065
     Dates: start: 20130520

REACTIONS (2)
  - Meningitis [Recovered/Resolved]
  - Clostridium difficile colitis [Not Recovered/Not Resolved]
